FAERS Safety Report 5717278-4 (Version None)
Quarter: 2008Q2

REPORT INFORMATION
  Report Type: 
  Country: None (occurrence: None)
  Receive Date: 20080423
  Receipt Date: 20080415
  Transmission Date: 20081010
  Serious: Yes (Hospitalization)
  Sender: FDA-Public Use
  Company Number: AU-JNJFOC-20070802495

PATIENT
  Age: 77 Year
  Sex: Male

DRUGS (9)
  1. DECITABINE (DECITABINE) LYOPHILIZED POWDER [Suspect]
     Indication: ACUTE MYELOID LEUKAEMIA
     Dosage: 10 MG/M2, IN 5 DAY, INTRAVENOUS
     Route: 042
     Dates: start: 20070730, end: 20070803
  2. DECITABINE (DECITABINE) LYOPHILIZED POWDER [Suspect]
     Indication: ACUTE MYELOID LEUKAEMIA
     Dosage: 10 MG/M2, IN 5 DAY, INTRAVENOUS
     Route: 042
     Dates: end: 20080307
  3. ASPIRIN [Concomitant]
  4. MINAX (METOPROLOL TARTRATE) [Concomitant]
  5. ACIMAX (OMEPRAZOLE) [Concomitant]
  6. NATURAL B VITAMINS (VITAMIN B) TABLETS [Concomitant]
  7. PROFLOXIN (CIPROFLOXACIN HYDROCHLORIDE) TABLETS [Concomitant]
  8. AMOXYCILLIN (AMOXICILLIN) TABLETS [Concomitant]
  9. MAXOLON [Concomitant]

REACTIONS (20)
  - ANOREXIA [None]
  - BLOOD PH INCREASED [None]
  - BODY TEMPERATURE INCREASED [None]
  - CHOLELITHIASIS [None]
  - FATIGUE [None]
  - HEPATIC CYST [None]
  - LIVER DISORDER [None]
  - LIVER FUNCTION TEST ABNORMAL [None]
  - MALAISE [None]
  - MUSCULOSKELETAL CHEST PAIN [None]
  - NAUSEA [None]
  - NIGHT SWEATS [None]
  - PALLOR [None]
  - RENAL FAILURE ACUTE [None]
  - SYNCOPE [None]
  - TUMOUR LYSIS SYNDROME [None]
  - URATE NEPHROPATHY [None]
  - VOMITING [None]
  - WEIGHT DECREASED [None]
  - WEIGHT INCREASED [None]
